FAERS Safety Report 6219307-0 (Version None)
Quarter: 2009Q2

REPORT INFORMATION
  Report Type: 
  Country: None (occurrence: None)
  Receive Date: 20090609
  Receipt Date: 20090529
  Transmission Date: 20091009
  Serious: Yes (Life-Threatening, Hospitalization, Other)
  Sender: FDA-Public Use
  Company Number: FR-BAYER-200912865GPV

PATIENT
  Age: 70 Year
  Sex: Female
  Weight: 55 kg

DRUGS (15)
  1. MABCAMPATH [Suspect]
     Indication: T-CELL PROLYMPHOCYTIC LEUKAEMIA
     Dosage: TOTAL DAILY DOSE: 3 MG
     Route: 058
     Dates: start: 20090128, end: 20090128
  2. MABCAMPATH [Suspect]
     Dosage: TOTAL DAILY DOSE: 10 MG
     Route: 058
     Dates: start: 20090129, end: 20090129
  3. MABCAMPATH [Suspect]
     Dosage: TOTAL DAILY DOSE: 30 MG
     Route: 058
     Dates: start: 20090130, end: 20090130
  4. FLUDARA [Suspect]
     Indication: T-CELL PROLYMPHOCYTIC LEUKAEMIA
     Dosage: 4 COURSES
     Route: 042
     Dates: start: 20090204
  5. FASTURTEC [Suspect]
     Indication: PROPHYLAXIS
     Route: 065
     Dates: start: 20090101
  6. ENDOXAN [Concomitant]
     Indication: T-CELL PROLYMPHOCYTIC LEUKAEMIA
     Dosage: 4 COURSES
     Route: 065
     Dates: start: 20090204
  7. CHLORAMINOPHENE [Concomitant]
     Indication: T-CELL PROLYMPHOCYTIC LEUKAEMIA
     Dosage: TOTAL DAILY DOSE: 10 MG
     Route: 048
     Dates: start: 20081024, end: 20081201
  8. SOLUPRED [Concomitant]
     Indication: T-CELL PROLYMPHOCYTIC LEUKAEMIA
     Dosage: TOTAL DAILY DOSE: 20 MG
     Route: 048
     Dates: start: 20090128, end: 20090130
  9. SOLUPRED [Concomitant]
     Dosage: TOTAL DAILY DOSE: 40 MG
     Route: 065
     Dates: start: 20081024, end: 20081201
  10. PARACETAMOL [Concomitant]
     Indication: PREMEDICATION
     Dosage: TOTAL DAILY DOSE: 1 G
     Route: 048
     Dates: start: 20090128
  11. ATARAX [Concomitant]
     Indication: PREMEDICATION
     Dosage: TOTAL DAILY DOSE: 25 MG
     Route: 048
     Dates: start: 20090128, end: 20090130
  12. VALACYCLOVIR HCL [Concomitant]
     Indication: ANTIVIRAL PROPHYLAXIS
     Dosage: TOTAL DAILY DOSE: 1000 MG
     Route: 048
  13. BACTRIM [Concomitant]
     Indication: ANTIBIOTIC PROPHYLAXIS
     Dosage: DOUBLE STRENGHT
     Route: 048
  14. ZYLORIC [Concomitant]
     Indication: PROPHYLAXIS
     Route: 048
  15. ARANESP [Concomitant]
     Indication: PROPHYLAXIS
     Route: 058

REACTIONS (17)
  - BLOOD BLISTER [None]
  - CAPILLARY LEAK SYNDROME [None]
  - CONFUSIONAL STATE [None]
  - DISSEMINATED INTRAVASCULAR COAGULATION [None]
  - FEBRILE BONE MARROW APLASIA [None]
  - GENERALISED OEDEMA [None]
  - GINGIVAL BLEEDING [None]
  - HAEMATOMA [None]
  - HYPOXIA [None]
  - INJECTION SITE HAEMORRHAGE [None]
  - INJECTION SITE OEDEMA [None]
  - OLIGURIA [None]
  - PULMONARY OEDEMA [None]
  - RENAL FAILURE [None]
  - RESPIRATORY FAILURE [None]
  - SOMNOLENCE [None]
  - TUMOUR LYSIS SYNDROME [None]
